FAERS Safety Report 22912694 (Version 3)
Quarter: 2024Q3

REPORT INFORMATION
  Report Type: Spontaneous
  Country: IN (occurrence: IN)
  Receive Date: 20230906
  Receipt Date: 20240815
  Transmission Date: 20241017
  Serious: Yes (Other)
  Sender: PFIZER
  Company Number: IN-PFIZER INC-2021685580

PATIENT
  Age: 62 Year
  Sex: Female

DRUGS (4)
  1. AROMASIN [Suspect]
     Active Substance: EXEMESTANE
     Indication: Breast cancer metastatic
     Dosage: 25 MG, 1X/DAY
     Route: 048
     Dates: start: 20210420
  2. CALCIUM CARBONATE\CHOLECALCIFEROL [Concomitant]
     Active Substance: CALCIUM CARBONATE\CHOLECALCIFEROL
     Dosage: 500 MG
  3. DENOSUMAB [Concomitant]
     Active Substance: DENOSUMAB
     Dosage: 60 MG
     Route: 058
  4. GABAPENTIN [Concomitant]
     Active Substance: GABAPENTIN
     Dosage: 100 MG HS X 3 MONTHS

REACTIONS (4)
  - Hypothyroidism [Unknown]
  - Hypertension [Not Recovered/Not Resolved]
  - Body mass index increased [Unknown]
  - Mean arterial pressure increased [Unknown]

NARRATIVE: CASE EVENT DATE: 20230811
